FAERS Safety Report 17239897 (Version 1)
Quarter: 2020Q1

REPORT INFORMATION
  Report Type: Spontaneous
  Country: US (occurrence: US)
  Receive Date: 20200106
  Receipt Date: 20200106
  Transmission Date: 20200409
  Serious: Yes (Hospitalization)
  Sender: FDA-Public Use
  Company Number: US-TEVA-2020-US-1164614

PATIENT
  Age: 23 Year
  Sex: Male

DRUGS (1)
  1. LAMOTRIGINE. [Suspect]
     Active Substance: LAMOTRIGINE
     Dosage: TOOK 50 OF THE 200 MG LAMOTRIGINE TABLETS
     Route: 065

REACTIONS (3)
  - Overdose [Unknown]
  - Delirium [Unknown]
  - Confusional state [Unknown]
